FAERS Safety Report 25853355 (Version 1)
Quarter: 2025Q3

REPORT INFORMATION
  Report Type: Spontaneous
  Country: US (occurrence: None)
  Receive Date: 20250926
  Receipt Date: 20250926
  Transmission Date: 20251020
  Serious: Yes (Disabling, Other)
  Sender: FDA-CTU
  Company Number: None

PATIENT
  Age: 75 Year
  Sex: Male
  Weight: 67.5 kg

DRUGS (6)
  1. CHOLESTYRAMINE LIGHT [Suspect]
     Active Substance: CHOLESTYRAMINE
     Indication: Therapeutic procedure
     Dosage: OTHER STRENGTH : 4 GRAMS;?OTHER QUANTITY : 1 4 GRAMS;?FREQUENCY : 3 TIMES A DAY;?
     Route: 048
     Dates: start: 202509
  2. ZANAFLEX [Concomitant]
     Active Substance: TIZANIDINE HYDROCHLORIDE
  3. omepresole [Concomitant]
  4. BRILINTA [Concomitant]
     Active Substance: TICAGRELOR
  5. levo thyroxine [Concomitant]
  6. Carvedidol [Concomitant]

REACTIONS (1)
  - Diarrhoea [None]

NARRATIVE: CASE EVENT DATE: 20250919
